FAERS Safety Report 21217204 (Version 1)
Quarter: 2022Q3

REPORT INFORMATION
  Report Type: Spontaneous
  Country: US (occurrence: None)
  Receive Date: 20220816
  Receipt Date: 20220816
  Transmission Date: 20221027
  Serious: Yes (unspecified)
  Sender: FDA-Public Use
  Company Number: None

PATIENT
  Age: 61 Year
  Sex: Female
  Weight: 70.65 kg

DRUGS (2)
  1. PAXLOVID [Suspect]
     Active Substance: NIRMATRELVIR\RITONAVIR
     Indication: COVID-19
     Dosage: FREQUENCY : TWICE A DAY;?
     Route: 048
     Dates: start: 20220706, end: 20220710
  2. ATENOLOL [Concomitant]
     Active Substance: ATENOLOL

REACTIONS (3)
  - Lip swelling [None]
  - Lip pain [None]
  - Fluid intake reduced [None]

NARRATIVE: CASE EVENT DATE: 20220716
